FAERS Safety Report 9525429 (Version 7)
Quarter: 2014Q2

REPORT INFORMATION
  Report Type: Report from Study
  Country: CA (occurrence: CA)
  Receive Date: 20130916
  Receipt Date: 20140414
  Transmission Date: 20141212
  Serious: Yes (Other)
  Sender: FDA-Public Use
  Company Number: CA-ROCHE-1227767

PATIENT
  Age: 63 Year
  Sex: Female
  Weight: 51 kg

DRUGS (12)
  1. ACTEMRA [Suspect]
     Indication: RHEUMATOID ARTHRITIS
     Route: 042
     Dates: start: 20110712
  2. ACTEMRA [Suspect]
     Route: 042
     Dates: start: 20110809
  3. ACTEMRA [Suspect]
     Route: 042
     Dates: start: 20111004
  4. ACTEMRA [Suspect]
     Route: 042
     Dates: start: 20111202
  5. ACTEMRA [Suspect]
     Route: 042
     Dates: start: 20120103
  6. ACTEMRA [Suspect]
     Route: 042
     Dates: start: 20120131
  7. ACTEMRA [Suspect]
     Route: 042
     Dates: start: 20120316
  8. ACTEMRA [Suspect]
     Route: 042
     Dates: start: 20130413
  9. ACTEMRA [Suspect]
     Route: 042
     Dates: start: 20120614
  10. ACTEMRA [Suspect]
     Route: 042
     Dates: start: 20130621
  11. PREDNISONE [Concomitant]
  12. CARBOCAL D [Concomitant]

REACTIONS (8)
  - Dermal cyst [Not Recovered/Not Resolved]
  - Acne [Unknown]
  - Pneumonia [Recovered/Resolved]
  - Infection [Unknown]
  - Gastroenteritis [Not Recovered/Not Resolved]
  - Herpes zoster [Recovered/Resolved]
  - Bronchitis [Unknown]
  - Joint swelling [Unknown]
